FAERS Safety Report 20320941 (Version 2)
Quarter: 2022Q1

REPORT INFORMATION
  Report Type: Spontaneous
  Country: IN (occurrence: IN)
  Receive Date: 20220111
  Receipt Date: 20220204
  Transmission Date: 20220423
  Serious: Yes (Life-Threatening, Hospitalization, Other)
  Sender: FDA-Public Use
  Company Number: IN-MLMSERVICE-2021123032915302

PATIENT
  Age: 37 Year
  Sex: Female

DRUGS (1)
  1. CISPLATIN [Suspect]
     Active Substance: CISPLATIN
     Indication: Cervix carcinoma stage IV

REACTIONS (5)
  - Cerebral venous sinus thrombosis [Recovered/Resolved]
  - Hemiparesis [Recovered/Resolved]
  - Transverse sinus thrombosis [Recovered/Resolved]
  - Toxicity to various agents [Unknown]
  - Superior sagittal sinus thrombosis [Recovered/Resolved]
